FAERS Safety Report 5451664-5 (Version None)
Quarter: 2007Q3

REPORT INFORMATION
  Report Type: 
  Country: None (occurrence: None)
  Receive Date: 20070913
  Receipt Date: 20070906
  Transmission Date: 20080115
  Serious: Yes (Hospitalization, Other)
  Sender: FDA-Public Use
  Company Number: JP-PFIZER INC-2007057370

PATIENT
  Sex: Female
  Weight: 57 kg

DRUGS (12)
  1. SOLU-MEDROL [Suspect]
     Indication: CONTRAST MEDIA ALLERGY
     Dosage: DAILY DOSE:500MG
     Route: 042
     Dates: start: 20061129, end: 20061213
  2. PREDONINE [Suspect]
     Dosage: DAILY DOSE:20MG-FREQ:FREQUENCY: QD
     Route: 048
     Dates: start: 20061214, end: 20061218
  3. ISCOTIN [Concomitant]
     Dosage: DAILY DOSE:300MG
     Route: 048
     Dates: start: 20061129, end: 20061218
  4. FAMOTIDINE [Concomitant]
     Dosage: DAILY DOSE:500MG
     Route: 048
     Dates: start: 20061129, end: 20061218
  5. PYDOXAL [Concomitant]
     Route: 048
     Dates: start: 20061129, end: 20061218
  6. ACE INHIBITOR NOS [Concomitant]
  7. ANGIOTENSIN II ANTAGONISTS [Concomitant]
  8. MICARDIS [Concomitant]
     Route: 048
  9. THYRADIN S [Concomitant]
     Route: 048
  10. COVERSYL [Concomitant]
     Route: 048
  11. LIPITOR [Concomitant]
     Route: 048
  12. PLETAL [Concomitant]
     Route: 048

REACTIONS (4)
  - ASCITES [None]
  - DYSPNOEA [None]
  - GENERALISED OEDEMA [None]
  - HYPERTENSION [None]
